FAERS Safety Report 6251553-2 (Version None)
Quarter: 2009Q2

REPORT INFORMATION
  Report Type: 
  Country: None (occurrence: None)
  Receive Date: 20090626
  Receipt Date: 20090626
  Transmission Date: 20091009
  Serious: Yes (Other)
  Sender: FDA-Public Use
  Company Number: None

PATIENT
  Age: 54 Year
  Sex: Female
  Weight: 190 kg

DRUGS (2)
  1. LEVAQUIN [Suspect]
     Indication: PNEUMONIA
  2. CIPRO [Suspect]
     Indication: SKIN INFECTION

REACTIONS (3)
  - NERVE INJURY [None]
  - TENDON RUPTURE [None]
  - TENDONITIS [None]
